FAERS Safety Report 14037507 (Version 4)
Quarter: 2017Q4

REPORT INFORMATION
  Report Type: Spontaneous
  Country: US (occurrence: US)
  Receive Date: 20171004
  Receipt Date: 20171128
  Transmission Date: 20180321
  Serious: No
  Sender: FDA-Public Use
  Company Number: PHEH2017US031687

PATIENT
  Sex: Female
  Weight: 68 kg

DRUGS (3)
  1. NEOMYCIN AND POLYMYXIN B SULFATES AND DEXAMETHASONE [Suspect]
     Active Substance: DEXAMETHASONE\NEOMYCIN SULFATE\POLYMYXIN B SULFATE
     Indication: EYE ALLERGY
     Dosage: TID (ON OUTSIDE OF EYES, ONCE AT NIGHT TO OUTSIDE OF EYES AND TO EYES DIRECTLY)
     Route: 047
     Dates: start: 20170920
  2. SIMBRINZA [Suspect]
     Active Substance: BRIMONIDINE TARTRATE\BRINZOLAMIDE
     Indication: GLAUCOMA
     Dosage: 1 GTT, TID
     Route: 047
     Dates: start: 20161209, end: 20170919
  3. LUMIGAN [Concomitant]
     Active Substance: BIMATOPROST
     Indication: GLAUCOMA
     Dosage: UNK
     Route: 065

REACTIONS (8)
  - Conjunctivitis [Recovered/Resolved]
  - Fatigue [Recovered/Resolved]
  - Dry mouth [Unknown]
  - Hypersensitivity [Unknown]
  - Blepharitis [Recovered/Resolved]
  - Scab [Unknown]
  - Ocular hyperaemia [Recovered/Resolved]
  - Erythema of eyelid [Unknown]
